FAERS Safety Report 20547431 (Version 5)
Quarter: 2024Q2

REPORT INFORMATION
  Report Type: Spontaneous
  Country: US (occurrence: US)
  Receive Date: 20220303
  Receipt Date: 20240417
  Transmission Date: 20240716
  Serious: No
  Sender: FDA-Public Use
  Company Number: US-PFIZER INC-202101075921

PATIENT
  Age: 77 Year
  Sex: Female
  Weight: 58.05 kg

DRUGS (11)
  1. XELJANZ XR [Suspect]
     Active Substance: TOFACITINIB CITRATE
     Indication: Rheumatoid arthritis
     Dosage: 11 MG ONCE A DAY
     Dates: start: 20200825
  2. METHOTREXATE [Concomitant]
     Active Substance: METHOTREXATE
     Dosage: 2.5 MG, 5 PER WEEK
  3. MELOXICAM [Concomitant]
     Active Substance: MELOXICAM
     Dosage: 2 PER DAY
  4. FOLIC ACID [Concomitant]
     Active Substance: FOLIC ACID
     Dosage: 1 MG, 1 PER DAY
  5. CHOLECALCIFEROL [Concomitant]
     Active Substance: CHOLECALCIFEROL
     Dosage: 2000 IU, ONCE A DAY
  6. VITAMIN A ACETATE [Concomitant]
     Active Substance: VITAMIN A ACETATE
     Dosage: 8000 IU, ONCE A DAY
  7. PANTOPRAZOLE [Concomitant]
     Active Substance: PANTOPRAZOLE
     Dosage: 40 MG, 1 PER DAY
  8. RESTASIS [Concomitant]
     Active Substance: CYCLOSPORINE
     Dosage: TWICE A DAY
  9. PROLIA [Concomitant]
     Active Substance: DENOSUMAB
     Dosage: 60 MG, EVERY 6 MONTHS
  10. MINERALS\VITAMINS [Concomitant]
     Active Substance: MINERALS\VITAMINS
     Dosage: 1 PER DAY
  11. CALCIUM CITRATE\CHOLECALCIFEROL [Concomitant]
     Active Substance: CALCIUM CITRATE\CHOLECALCIFEROL
     Dosage: 630 MG, 2 PER DAY

REACTIONS (2)
  - Throat clearing [Not Recovered/Not Resolved]
  - Condition aggravated [Not Recovered/Not Resolved]
